FAERS Safety Report 25166177 (Version 7)
Quarter: 2025Q3

REPORT INFORMATION
  Report Type: Report from Study
  Country: US (occurrence: US)
  Receive Date: 20250407
  Receipt Date: 20250717
  Transmission Date: 20251020
  Serious: Yes (Other)
  Sender: SUNOVION
  Company Number: US-SMPA-2025SPA002938AA

PATIENT

DRUGS (2)
  1. ORGOVYX [Suspect]
     Active Substance: RELUGOLIX
     Indication: Prostate cancer
     Route: 048
  2. ORGOVYX [Suspect]
     Active Substance: RELUGOLIX
     Dosage: 120 MG, QD
     Route: 048
     Dates: start: 20250312

REACTIONS (14)
  - Metastases to lymph nodes [Unknown]
  - Neuropathy peripheral [Unknown]
  - Brain fog [Unknown]
  - Pain [Unknown]
  - Discomfort [Unknown]
  - Abulia [Unknown]
  - Psychiatric symptom [Unknown]
  - Incontinence [Unknown]
  - Neoplasm [Unknown]
  - Thrombosis [Unknown]
  - Dizziness [Unknown]
  - Diarrhoea [Unknown]
  - Insomnia [Unknown]
  - Bone pain [Unknown]
